FAERS Safety Report 21824088 (Version 3)
Quarter: 2023Q1

REPORT INFORMATION
  Report Type: Report from Study
  Country: US (occurrence: US)
  Receive Date: 20230105
  Receipt Date: 20230331
  Transmission Date: 20230418
  Serious: Yes (Hospitalization)
  Sender: FDA-Public Use
  Company Number: US-ABBVIE-4247105

PATIENT
  Age: 65 Year
  Sex: Female

DRUGS (3)
  1. VENETOCLAX [Suspect]
     Active Substance: VENETOCLAX
     Indication: Acute myeloid leukaemia
     Dosage: D1- 30/NOV/2022 - 04/DEC/2022 AND 100 MG D614 05/DEC/2022 - 13/DEC/2022 (400 MG)
     Route: 048
     Dates: start: 20221130
  2. AZACITIDINE [Concomitant]
     Active Substance: AZACITIDINE
     Indication: Acute myeloid leukaemia
     Dosage: 30/NOV/2022 TO 06/DEC/2022
     Route: 042
     Dates: start: 20221130
  3. MAGROLIMAB [Concomitant]
     Active Substance: MAGROLIMAB
     Indication: Acute myeloid leukaemia
     Dosage: D8: 07/DEC/2022, D15: 14/DEC/2022 (30 MG/KG)
     Route: 042
     Dates: start: 20221130

REACTIONS (1)
  - Vulvitis [Recovered/Resolved]

NARRATIVE: CASE EVENT DATE: 20221219
